FAERS Safety Report 10235379 (Version 1)
Quarter: 2014Q1

REPORT INFORMATION
  Report Type: Spontaneous
  Country: US (occurrence: None)
  Receive Date: 20140306
  Receipt Date: 20140306
  Transmission Date: 20141002
  Serious: Yes (Hospitalization)
  Sender: FDA-Public Use
  Company Number: 163-21880-13092175

PATIENT
  Age: 67 Year
  Sex: Male

DRUGS (9)
  1. REVLIMID (LENALIDOMIDE) (10 MILLIGRAM, CAPSULES) [Suspect]
     Indication: PLASMA CELL MYELOMA
     Route: 048
     Dates: start: 201008, end: 2010
  2. BENADRYL ALLERGY (BENADRYL ALLERGY) [Concomitant]
  3. DEXAMETHASONE (DEXAMETHASONE) [Concomitant]
  4. DIGOXIN (DIGOXIN) [Concomitant]
  5. EPOGEN (EPOETIN ALFA) [Concomitant]
  6. FOLIC ACID (FOLIC ACID) [Concomitant]
  7. MEGESTROL ACETATE (MEGEGTROL ACETATE) [Concomitant]
  8. PLAVIX (CLOPIDOGREL SULFATE) [Concomitant]
  9. PREDNISONE (PREDNISONE) [Concomitant]

REACTIONS (1)
  - Pyrexia [None]
